FAERS Safety Report 7250008-6 (Version None)
Quarter: 2011Q1

REPORT INFORMATION
  Report Type: 
  Country: None (occurrence: None)
  Receive Date: 20110128
  Receipt Date: 20110119
  Transmission Date: 20110831
  Serious: No
  Sender: FDA-Public Use
  Company Number: PHHY2011JP05625

PATIENT

DRUGS (1)
  1. TASIGNA [Suspect]
     Dosage: UNK
     Route: 058

REACTIONS (2)
  - INCORRECT ROUTE OF DRUG ADMINISTRATION [None]
  - HYPERGLYCAEMIA [None]
